FAERS Safety Report 25985599 (Version 1)
Quarter: 2025Q4

REPORT INFORMATION
  Report Type: Spontaneous
  Country: US (occurrence: US)
  Receive Date: 20251031
  Receipt Date: 20251031
  Transmission Date: 20260117
  Serious: Yes (Other)
  Sender: BELOTECA, INC.
  Company Number: US-NATCOPHARMA-2025-US-048438

PATIENT
  Age: 79 Year
  Sex: Female
  Weight: 92 kg

DRUGS (1)
  1. DIAZEPAM [Suspect]
     Active Substance: DIAZEPAM
     Indication: Sedative therapy
     Dosage: 5  MG IV PUSH
     Route: 042
     Dates: start: 20251003, end: 20251003

REACTIONS (1)
  - Loss of consciousness [Unknown]

NARRATIVE: CASE EVENT DATE: 20251003
